FAERS Safety Report 15465448 (Version 1)
Quarter: 2018Q4

REPORT INFORMATION
  Report Type: Spontaneous
  Country: US (occurrence: US)
  Receive Date: 20181004
  Receipt Date: 20181004
  Transmission Date: 20190204
  Serious: No
  Sender: FDA-Public Use
  Company Number: US-TEVA-2018-US-959887

PATIENT
  Age: 70 Year
  Sex: Female

DRUGS (2)
  1. CLONAZEPAM TEVA [Suspect]
     Active Substance: CLONAZEPAM
     Indication: FIBROMYALGIA
  2. CLONAZEPAM TEVA [Suspect]
     Active Substance: CLONAZEPAM
     Indication: INSOMNIA
     Route: 065

REACTIONS (2)
  - Abdominal pain upper [Unknown]
  - Abdominal discomfort [Unknown]
